FAERS Safety Report 9763699 (Version 2)
Quarter: 2014Q2

REPORT INFORMATION
  Report Type: Spontaneous
  Country: US (occurrence: US)
  Receive Date: 20131216
  Receipt Date: 20140618
  Transmission Date: 20141212
  Serious: No
  Sender: FDA-Public Use
  Company Number: US-BIOGENIDEC-2013BI113403

PATIENT
  Age: 43 Year
  Sex: Female

DRUGS (24)
  1. TECFIDERA [Suspect]
     Indication: MULTIPLE SCLEROSIS
     Route: 048
     Dates: start: 20130613
  2. TECFIDERA [Suspect]
     Indication: MULTIPLE SCLEROSIS
     Route: 048
  3. TECFIDERA [Suspect]
     Indication: MULTIPLE SCLEROSIS
     Route: 048
  4. TECFIDERA [Suspect]
     Indication: MULTIPLE SCLEROSIS
     Route: 048
  5. AMBIEN CR [Concomitant]
  6. DILAUDID [Concomitant]
  7. FIORICET [Concomitant]
  8. FOLIC ACID [Concomitant]
  9. HYDROCORTISONE [Concomitant]
  10. IBUPROFEN [Concomitant]
  11. LYRICA [Concomitant]
  12. MIRENA [Concomitant]
  13. OXCARBAZEPINE [Concomitant]
  14. PRE-NATAL FORMULA [Concomitant]
  15. PREVACID [Concomitant]
  16. PROAIR HFA [Concomitant]
  17. SYNTHROID [Concomitant]
  18. TOPOMAX [Concomitant]
  19. VALIUM [Concomitant]
  20. VITAMIN B12 [Concomitant]
  21. VITAMIN D (ERGOCALCIFEROL) [Concomitant]
  22. XOPENEX CONCENTRATE [Concomitant]
  23. ZANAFLEX [Concomitant]
  24. ZANTAC [Concomitant]

REACTIONS (5)
  - Adverse drug reaction [Recovered/Resolved]
  - Intentional underdose [Unknown]
  - Decreased appetite [Not Recovered/Not Resolved]
  - Rash [Recovered/Resolved]
  - Flushing [Recovered/Resolved]
